FAERS Safety Report 4284817-2 (Version None)
Quarter: 2004Q1

REPORT INFORMATION
  Report Type: 
  Country: None (occurrence: None)
  Receive Date: 20040204
  Receipt Date: 20031110
  Transmission Date: 20041129
  Serious: No
  Sender: FDA-Public Use
  Company Number: US-BRISTOL-MYERS SQUIBB COMPANY-12433785

PATIENT
  Sex: Male

DRUGS (1)
  1. AZACTAM [Suspect]
     Dates: start: 20031105

REACTIONS (1)
  - EOSINOPHILIA [None]
